FAERS Safety Report 6510162-8 (Version None)
Quarter: 2009Q4

REPORT INFORMATION
  Report Type: 
  Country: None (occurrence: None)
  Receive Date: 20091222
  Receipt Date: 20091217
  Transmission Date: 20100525
  Serious: Yes (Death, Hospitalization)
  Sender: FDA-Public Use
  Company Number: US-GILEAD-2009-0025985

PATIENT
  Sex: Male
  Weight: 104.42 kg

DRUGS (10)
  1. LETAIRIS [Suspect]
     Indication: PULMONARY ARTERIAL HYPERTENSION
     Route: 048
     Dates: start: 20091012, end: 20091118
  2. IMURAN [Concomitant]
  3. PREDNISONE [Concomitant]
  4. UROXATRAL [Concomitant]
  5. SYNTHROID [Concomitant]
  6. ZANTAC [Concomitant]
  7. CHILDREN'S ASPIRIN [Concomitant]
  8. ACETYLCYSTEINE [Concomitant]
  9. LANSOPRAZOLE [Concomitant]
  10. CENTRUM SILVER [Concomitant]

REACTIONS (1)
  - PNEUMONITIS [None]
